FAERS Safety Report 10137745 (Version 1)
Quarter: 2014Q2

REPORT INFORMATION
  Report Type: Spontaneous
  Country: US (occurrence: US)
  Receive Date: 20140429
  Receipt Date: 20140429
  Transmission Date: 20141212
  Serious: Yes (Hospitalization)
  Sender: FDA-Public Use
  Company Number: US-BAYER-2014-059785

PATIENT
  Age: 25 Year
  Sex: Female
  Weight: 59 kg

DRUGS (10)
  1. ALPRAZOLAM [Concomitant]
     Indication: ANXIETY
     Dosage: 0.25 MG, TID IF NEEDED
     Route: 048
  2. KEFLEX [Concomitant]
     Dosage: 500 MG, TID DAILY FOR 7 DAYS
     Route: 048
  3. ADVIL [Concomitant]
     Dosage: 200 MG, EVERY 6 HOURS AS NEEDED
     Route: 048
  4. RELPAX [Concomitant]
     Dosage: 20 MG, MAY REPEAT AFTER TWO HOURS, NO MORE THAN 2 DOSES IN 24 HOURS
     Route: 048
  5. PERCOCET [Concomitant]
     Indication: PAIN
     Dosage: 5-325 MG, 1-2 TABLETS EVERY 4 HOURS IF NEEDED
     Route: 048
  6. ELETRIPTAN [Concomitant]
  7. PREMARIN [Concomitant]
  8. XANAX [Concomitant]
  9. YAZ [Suspect]
  10. YASMIN [Suspect]

REACTIONS (1)
  - Deep vein thrombosis [Recovered/Resolved]
